FAERS Safety Report 7086949-2 (Version None)
Quarter: 2010Q4

REPORT INFORMATION
  Report Type: 
  Country: None (occurrence: None)
  Receive Date: 20101106
  Receipt Date: 20101015
  Transmission Date: 20110411
  Serious: Yes (Other)
  Sender: FDA-Public Use
  Company Number: HQWYE290316AUG04

PATIENT
  Sex: Female

DRUGS (4)
  1. PREMPRO [Suspect]
     Indication: HORMONE REPLACEMENT THERAPY
     Dosage: UNKNOWN
     Route: 048
     Dates: start: 19980701, end: 20020809
  2. PROVERA [Suspect]
  3. PREMARIN [Suspect]
  4. PREMARIN [Suspect]

REACTIONS (1)
  - BREAST CANCER [None]
